FAERS Safety Report 19735739 (Version 1)
Quarter: 2021Q3

REPORT INFORMATION
  Report Type: Spontaneous
  Country: CN (occurrence: CN)
  Receive Date: 20210823
  Receipt Date: 20210823
  Transmission Date: 20211014
  Serious: Yes (Hospitalization)
  Sender: FDA-Public Use
  Company Number: CN-BAYER-2021-192360

PATIENT
  Age: 50 Year
  Sex: Male
  Weight: 59 kg

DRUGS (1)
  1. STIVARGA [Suspect]
     Active Substance: REGORAFENIB
     Indication: TARGETED CANCER THERAPY
     Dosage: 160 MG, QD
     Route: 048
     Dates: start: 20210615, end: 20210810

REACTIONS (4)
  - Colitis [Recovering/Resolving]
  - Abdominal pain [Recovering/Resolving]
  - Faeces pale [Recovering/Resolving]
  - Diarrhoea [Recovering/Resolving]

NARRATIVE: CASE EVENT DATE: 202107
